FAERS Safety Report 10078813 (Version 2)
Quarter: 2014Q2

REPORT INFORMATION
  Report Type: Spontaneous
  Country: JP (occurrence: JP)
  Receive Date: 20140415
  Receipt Date: 20140430
  Transmission Date: 20141212
  Serious: Yes (Other)
  Sender: FDA-Public Use
  Company Number: JP-SA-2014SA046563

PATIENT
  Age: 58 Year
  Sex: Female
  Weight: 70 kg

DRUGS (7)
  1. ALLEGRA [Suspect]
     Indication: URTICARIA
     Route: 048
     Dates: start: 20131010, end: 20140327
  2. LIPITOR [Concomitant]
     Dosage: 10 MG TABLET
     Route: 065
  3. ADALAT CR [Concomitant]
     Dosage: CR 20
  4. PARIET [Concomitant]
  5. AZILVA [Concomitant]
     Dosage: 20 MG TABLET
     Route: 065
  6. MAINTATE [Concomitant]
     Dosage: 5 MG TABLET
     Route: 065
  7. BAYASPIRIN [Concomitant]
     Dosage: 100 MG

REACTIONS (2)
  - Hypoaesthesia [Recovering/Resolving]
  - Dysaesthesia [Recovering/Resolving]
